FAERS Safety Report 18412304 (Version 1)
Quarter: 2020Q4

REPORT INFORMATION
  Report Type: Other
  Country: IT (occurrence: IT)
  Receive Date: 20201021
  Receipt Date: 20201021
  Transmission Date: 20210114
  Serious: Yes (Death, Other)
  Sender: FDA-Public Use
  Company Number: IT-KALEO, INC.-2020KL000111

PATIENT
  Age: 16 Year
  Sex: Male

DRUGS (1)
  1. AUVI-Q [Suspect]
     Active Substance: EPINEPHRINE
     Indication: ANAPHYLACTIC REACTION
     Route: 030

REACTIONS (2)
  - Cardiopulmonary failure [Fatal]
  - Anaphylactic shock [Not Recovered/Not Resolved]
